FAERS Safety Report 25681886 (Version 2)
Quarter: 2025Q3

REPORT INFORMATION
  Report Type: Spontaneous
  Country: EU (occurrence: EU)
  Receive Date: 20250814
  Receipt Date: 20250829
  Transmission Date: 20251021
  Serious: Yes (Other)
  Sender: TEVA
  Company Number: EU-TEVA-VS-3360977

PATIENT
  Age: 13 Year
  Sex: Male

DRUGS (4)
  1. GABAPENTIN [Suspect]
     Active Substance: GABAPENTIN
     Indication: Neuralgia
     Route: 065
     Dates: start: 201908, end: 2019
  2. OXYCODONE [Suspect]
     Active Substance: OXYCODONE
     Indication: Neuralgia
     Route: 065
     Dates: start: 201908, end: 2019
  3. SELUMETINIB [Suspect]
     Active Substance: SELUMETINIB
     Indication: Neurofibromatosis
     Route: 065
     Dates: start: 201908
  4. ACETAMINOPHEN [Suspect]
     Active Substance: ACETAMINOPHEN
     Indication: Neuralgia
     Route: 065

REACTIONS (4)
  - Drug ineffective [Unknown]
  - Paronychia [Unknown]
  - Off label use [Unknown]
  - Drug eruption [Unknown]
